FAERS Safety Report 6968406-4 (Version None)
Quarter: 2010Q3

REPORT INFORMATION
  Report Type: 
  Country: None (occurrence: None)
  Receive Date: 20100907
  Receipt Date: 20100824
  Transmission Date: 20110219
  Serious: Yes (Hospitalization)
  Sender: FDA-Public Use
  Company Number: PHHY2010DE10896

PATIENT
  Age: 66 Year
  Sex: Female

DRUGS (2)
  1. AFINITOR [Suspect]
     Indication: RENAL CELL CARCINOMA
     Dosage: 10 MG/DAY
     Route: 048
     Dates: start: 20100201
  2. AFINITOR [Suspect]
     Dosage: 5 MG/DAY
     Route: 048
     Dates: start: 20100301

REACTIONS (5)
  - ABDOMINAL PAIN UPPER [None]
  - DYSPHAGIA [None]
  - HYPOPHAGIA [None]
  - ODYNOPHAGIA [None]
  - OESOPHAGITIS [None]
